FAERS Safety Report 4760269-0 (Version None)
Quarter: 2005Q3

REPORT INFORMATION
  Report Type: 
  Country: None (occurrence: None)
  Receive Date: 20050902
  Receipt Date: 20050824
  Transmission Date: 20060218
  Serious: Yes (Hospitalization)
  Sender: FDA-Public Use
  Company Number: DE-ROCHE-415412

PATIENT
  Age: 68 Year
  Sex: Female
  Weight: 55 kg

DRUGS (22)
  1. DACLIZUMAB [Suspect]
     Route: 042
     Dates: start: 20031007, end: 20031007
  2. DACLIZUMAB [Suspect]
     Route: 042
     Dates: end: 20031203
  3. MYCOPHENOLATE MOFETIL [Suspect]
     Route: 048
     Dates: start: 20031007
  4. MYCOPHENOLATE MOFETIL [Suspect]
     Route: 048
  5. CYCLOSPORINE [Suspect]
     Dosage: DOSES OF 50 MG AND 75 MG.
     Route: 048
     Dates: start: 20031007
  6. CYCLOSPORINE [Suspect]
     Route: 048
  7. DECORTIN [Suspect]
     Route: 048
     Dates: start: 20031007
  8. VALCYTE [Concomitant]
     Route: 048
     Dates: start: 20031007
  9. PANTOZOL [Concomitant]
     Route: 048
     Dates: start: 20031007
  10. REDUCTO-SPEZIAL [Concomitant]
     Route: 048
     Dates: start: 20031007
  11. DILTIAZEM [Concomitant]
     Route: 048
     Dates: start: 20031007
  12. BELOC ZOK MITE [Concomitant]
     Route: 048
     Dates: start: 20031007
  13. CALCIMAGON-D3 [Concomitant]
     Dosage: DOSE: 500 MG/ 400 IE.
     Route: 048
     Dates: start: 20031007
  14. DELIX 5 [Concomitant]
     Dosage: NEW DOSE REPORTED AS 2.5 (NO UNITS PROVIDED) ONCE DAILY.
     Route: 048
     Dates: start: 20031007
  15. COTRIM DS [Concomitant]
     Dosage: FREQUENCY: 1 X 0.5.
     Route: 048
     Dates: start: 20031007
  16. MAGNESIUM [Concomitant]
     Route: 048
     Dates: start: 20031007
  17. CYNT [Concomitant]
     Route: 048
     Dates: start: 20031007
  18. LOCOL 40 [Concomitant]
     Route: 048
     Dates: start: 20031007
  19. MAGNESIOCARD [Concomitant]
     Dosage: DOSE: 2.5 (NO UNITS PROVIDED).
     Route: 048
     Dates: start: 20031007
  20. TORSEMIDE [Concomitant]
     Dates: start: 20031007
  21. ALLOPURINOL [Concomitant]
     Dates: start: 20031007
  22. VALORON [Concomitant]
     Dates: start: 20031007

REACTIONS (1)
  - URINARY TRACT INFECTION [None]
